FAERS Safety Report 9314967 (Version 2)
Quarter: 2013Q2

REPORT INFORMATION
  Report Type: Spontaneous
  Country: JP (occurrence: JP)
  Receive Date: 20130529
  Receipt Date: 20130603
  Transmission Date: 20140414
  Serious: Yes (Hospitalization)
  Sender: FDA-Public Use
  Company Number: JP-B.I. PHARMACEUTICALS,INC./RIDGEFIELD-2013-BI-13670NB

PATIENT
  Age: 82 Year
  Sex: Female

DRUGS (3)
  1. MIRAPEX LA [Suspect]
     Indication: PARKINSON^S DISEASE
     Dosage: 4.5 MG
     Route: 048
     Dates: end: 20130512
  2. UNKNOWN DRUG [Concomitant]
     Route: 065
  3. FP [Concomitant]
     Indication: PARKINSON^S DISEASE
     Route: 048

REACTIONS (3)
  - Lower limb fracture [Unknown]
  - Fall [Unknown]
  - Contusion [Unknown]
